FAERS Safety Report 9635670 (Version 1)
Quarter: 2013Q4

REPORT INFORMATION
  Report Type: Spontaneous
  Country: US (occurrence: US)
  Receive Date: 20131021
  Receipt Date: 20131021
  Transmission Date: 20140711
  Serious: Yes (Other)
  Sender: FDA-Public Use
  Company Number: US-GLAXOSMITHKLINE-A1045734A

PATIENT
  Age: 76 Year
  Sex: Female

DRUGS (5)
  1. LOVAZA [Suspect]
     Indication: BLOOD TRIGLYCERIDES INCREASED
     Dosage: 1G PER DAY
     Route: 048
     Dates: start: 20131004, end: 20131007
  2. VITAMINS [Concomitant]
  3. CENTRUM SILVER [Concomitant]
  4. VITAMIN B COMPLEX [Concomitant]
  5. BIOTIN [Concomitant]

REACTIONS (10)
  - Cardiac flutter [Not Recovered/Not Resolved]
  - Mental impairment [Recovering/Resolving]
  - Malaise [Recovering/Resolving]
  - Chest discomfort [Recovering/Resolving]
  - Sensation of blood flow [Not Recovered/Not Resolved]
  - Feeling abnormal [Recovering/Resolving]
  - Feeling abnormal [Recovering/Resolving]
  - Feeling abnormal [Recovering/Resolving]
  - Dysphonia [Recovering/Resolving]
  - Documented hypersensitivity to administered drug [Unknown]
